FAERS Safety Report 5004523-6 (Version None)
Quarter: 2006Q2

REPORT INFORMATION
  Report Type: 
  Country: None (occurrence: None)
  Receive Date: 20060516
  Receipt Date: 20060516
  Transmission Date: 20061013
  Serious: Yes (Hospitalization)
  Sender: FDA-Public Use
  Company Number: None

PATIENT
  Age: 82 Year
  Sex: Male
  Weight: 80 kg

DRUGS (1)
  1. ZOSYN [Suspect]
     Indication: WOUND INFECTION
     Dosage: Q 6 H IV
     Route: 042
     Dates: start: 20051202, end: 20060104

REACTIONS (6)
  - BLOOD CULTURE POSITIVE [None]
  - CLOSTRIDIAL INFECTION [None]
  - DIARRHOEA [None]
  - HYPERGLYCAEMIA [None]
  - RENAL FAILURE ACUTE [None]
  - URINARY TRACT INFECTION [None]
